FAERS Safety Report 8263870-5 (Version None)
Quarter: 2012Q2

REPORT INFORMATION
  Report Type: 
  Country: None (occurrence: None)
  Receive Date: 20120405
  Receipt Date: 20120326
  Transmission Date: 20120825
  Serious: Yes (Hospitalization, Other)
  Sender: FDA-Public Use
  Company Number: US-RB-038179-12

PATIENT
  Age: 62 Year
  Sex: Male

DRUGS (3)
  1. KEPPRA [Concomitant]
     Indication: EPILEPSY
     Dosage: 1000MG EVERY MORNING AND 1000MG EVERY EVENING
     Route: 065
  2. DILANTIN [Concomitant]
     Indication: EPILEPSY
     Dosage: DOSING DETAILS UNKNOWN
     Route: 065
  3. SUBOXONE [Suspect]
     Indication: PRODUCT USED FOR UNKNOWN INDICATION
     Dosage: DOSING DETAILS UNKNOWN
     Route: 060
     Dates: start: 20090101, end: 20090101

REACTIONS (2)
  - CONVULSION [None]
  - LOSS OF CONSCIOUSNESS [None]
